FAERS Safety Report 18247365 (Version 1)
Quarter: 2020Q3

REPORT INFORMATION
  Report Type: Spontaneous
  Country: CZ (occurrence: CZ)
  Receive Date: 20200909
  Receipt Date: 20200909
  Transmission Date: 20201103
  Serious: Yes (Hospitalization)
  Sender: FDA-Public Use
  Company Number: CZ-PFIZER INC-2020345683

PATIENT
  Age: 70 Year
  Sex: Female

DRUGS (1)
  1. TREXAN [METHOTREXATE SODIUM] [Suspect]
     Active Substance: METHOTREXATE SODIUM
     Dosage: 2.5 MG (3 TABLETS IN THE MORNING AND EVENING ONCE A WEEKSTRENGTH: 2.5 MG)
     Route: 048
     Dates: start: 20200812, end: 20200812

REACTIONS (8)
  - Pyrexia [Unknown]
  - Rash [Unknown]
  - Blister [Unknown]
  - Oropharyngeal plaque [Unknown]
  - Erythema [Unknown]
  - Oropharyngeal pain [Unknown]
  - Peripheral swelling [Unknown]
  - Oral blood blister [Unknown]

NARRATIVE: CASE EVENT DATE: 20200815
